FAERS Safety Report 5589469-7 (Version None)
Quarter: 2008Q1

REPORT INFORMATION
  Report Type: 
  Country: None (occurrence: None)
  Receive Date: 20080114
  Receipt Date: 20080102
  Transmission Date: 20080703
  Serious: Yes (Other)
  Sender: FDA-Public Use
  Company Number: US-ROCHE-539286

PATIENT
  Age: 63 Year
  Sex: Female

DRUGS (8)
  1. BONIVA [Suspect]
     Indication: ARTHRITIS
     Route: 065
     Dates: start: 20071001, end: 20071001
  2. BONIVA [Suspect]
     Route: 065
     Dates: start: 20071201
  3. PREDNISONE TAB [Suspect]
     Indication: ARTHRITIS
     Dosage: OTHER INDICATION: PNEUMONIA
     Route: 065
     Dates: start: 20061101, end: 20071001
  4. PLAQUENIL [Concomitant]
  5. VITAMINE D [Concomitant]
  6. CALCIUM [Concomitant]
  7. METFORMIN HCL [Concomitant]
  8. CENTRUM [Concomitant]

REACTIONS (5)
  - ABDOMINAL PAIN UPPER [None]
  - ARTHRITIS [None]
  - INFLUENZA LIKE ILLNESS [None]
  - NAUSEA [None]
  - ROTATOR CUFF REPAIR [None]
